FAERS Safety Report 6431250-0 (Version None)
Quarter: 2009Q4

REPORT INFORMATION
  Report Type: 
  Country: None (occurrence: None)
  Receive Date: 20091106
  Receipt Date: 20091028
  Transmission Date: 20100525
  Serious: Yes (Hospitalization)
  Sender: FDA-Public Use
  Company Number: BR-ABBOTT-09P-020-0592930-00

PATIENT
  Sex: Female
  Weight: 64 kg

DRUGS (3)
  1. HUMIRA [Suspect]
     Indication: RHEUMATOID ARTHRITIS
     Route: 058
     Dates: start: 20090301
  2. UNKNOWN THERAPIES [Concomitant]
     Indication: DRUG USE FOR UNKNOWN INDICATION
  3. DIPROSPAN [Concomitant]
     Indication: DRUG USE FOR UNKNOWN INDICATION

REACTIONS (18)
  - ANAEMIA [None]
  - ARTHRALGIA [None]
  - ASTHENIA [None]
  - BLOOD CHOLESTEROL INCREASED [None]
  - BLOOD GLUCOSE INCREASED [None]
  - DRUG INEFFECTIVE [None]
  - DYSSTASIA [None]
  - FEELING COLD [None]
  - FEELING OF DESPAIR [None]
  - GASTRIC DISORDER [None]
  - HYPERTENSION [None]
  - HYPOTENSION [None]
  - INFLAMMATION [None]
  - MALAISE [None]
  - PYREXIA [None]
  - SENSORY DISTURBANCE [None]
  - SEPSIS [None]
  - VOMITING [None]
